FAERS Safety Report 9843565 (Version 1)
Quarter: 2013Q4

REPORT INFORMATION
  Report Type: Spontaneous
  Country: US (occurrence: None)
  Receive Date: 20131219
  Receipt Date: 20131219
  Transmission Date: 20140711
  Serious: Yes (Other)
  Sender: FDA-Public Use
  Company Number: 163-20785-13031830

PATIENT
  Age: 87 Year
  Sex: Male
  Weight: 80.74 kg

DRUGS (5)
  1. THALOMID [Suspect]
     Indication: PLASMA CELL MYELOMA
     Route: 048
     Dates: start: 201102
  2. ACYCLOVIR(ACICLOVIR)(UNKNOWN) [Concomitant]
  3. VITAMIN C(ASCORBIC ACID)(UNKNOWN) [Concomitant]
  4. ASPIRIN(ACETYLSALICYLIC ACID) (UNKNOWN) [Concomitant]
  5. MULTIVITAMINS(MULTIVITAMINS)(UNKNOWN) [Concomitant]

REACTIONS (2)
  - Thrombosis [None]
  - Rash [None]
